FAERS Safety Report 20529428 (Version 1)
Quarter: 2022Q1

REPORT INFORMATION
  Report Type: Report from Study
  Country: US (occurrence: US)
  Receive Date: 20220228
  Receipt Date: 20220228
  Transmission Date: 20220423
  Serious: Yes (Hospitalization)
  Sender: FDA-Public Use
  Company Number: US-ABBVIE-22K-163-4263582-00

PATIENT
  Sex: Female

DRUGS (2)
  1. IMBRUVICA [Suspect]
     Active Substance: IBRUTINIB
     Indication: Chronic lymphocytic leukaemia recurrent
     Route: 048
     Dates: start: 20210622
  2. IMBRUVICA [Suspect]
     Active Substance: IBRUTINIB
     Indication: Chronic lymphocytic leukaemia

REACTIONS (11)
  - Hypophagia [Unknown]
  - Malnutrition [Unknown]
  - Dehydration [Unknown]
  - Upper limb fracture [Unknown]
  - Humerus fracture [Unknown]
  - Tooth disorder [Unknown]
  - Dementia [Unknown]
  - Arthralgia [Unknown]
  - Pain in extremity [Unknown]
  - Fall [Unknown]
  - Malaise [Unknown]
